FAERS Safety Report 5249551-0 (Version None)
Quarter: 2007Q1

REPORT INFORMATION
  Report Type: 
  Country: None (occurrence: None)
  Receive Date: 20070228
  Receipt Date: 20060227
  Transmission Date: 20070707
  Serious: No
  Sender: FDA-Public Use
  Company Number: US-GLAXOSMITHKLINE-A0593690A

PATIENT
  Age: 32 Year
  Sex: Male
  Weight: 68.2 kg

DRUGS (1)
  1. IMITREX [Suspect]
     Indication: CLUSTER HEADACHE
     Route: 058
     Dates: start: 20000101, end: 20060213

REACTIONS (2)
  - HYPOAESTHESIA [None]
  - PARAESTHESIA [None]
